FAERS Safety Report 22134819 (Version 1)
Quarter: 2023Q1

REPORT INFORMATION
  Report Type: Spontaneous
  Country: None (occurrence: CA)
  Receive Date: 20230324
  Receipt Date: 20230324
  Transmission Date: 20230417
  Serious: Yes (Death, Other)
  Sender: FDA-Public Use
  Company Number: CA-B.Braun Medical Inc.-2139496

PATIENT

DRUGS (10)
  1. DEXTROSE [Suspect]
     Active Substance: DEXTROSE
  2. DIAZEPAM [Suspect]
     Active Substance: DIAZEPAM
  3. LORAZEPAM [Suspect]
     Active Substance: LORAZEPAM
  4. METOCLOPRAMIDE [Suspect]
     Active Substance: METOCLOPRAMIDE
  5. MIDAZOLAM [Suspect]
     Active Substance: MIDAZOLAM
  6. PAROXETINE HYDROCHLORIDE [Suspect]
     Active Substance: PAROXETINE HYDROCHLORIDE
  7. PHENYTOIN [Suspect]
     Active Substance: PHENYTOIN
  8. PROPOFOL [Suspect]
     Active Substance: PROPOFOL
  9. SUCCINYLCHOLINE [Suspect]
     Active Substance: SUCCINYLCHOLINE
  10. THIOPENTAL SODIUM [Suspect]
     Active Substance: THIOPENTAL SODIUM

REACTIONS (2)
  - Death [Fatal]
  - Foetal exposure during pregnancy [Fatal]
